FAERS Safety Report 17922897 (Version 4)
Quarter: 2020Q4

REPORT INFORMATION
  Report Type: Spontaneous
  Country: JP (occurrence: JP)
  Receive Date: 20200622
  Receipt Date: 20201026
  Transmission Date: 20210113
  Serious: Yes (Life-Threatening)
  Sender: FDA-Public Use
  Company Number: JP-JNJFOC-20200624463

PATIENT
  Age: 40 Year
  Sex: Male

DRUGS (4)
  1. PENTASA [Concomitant]
     Active Substance: MESALAMINE
     Indication: CROHN^S DISEASE
     Dosage: 3000 MILLIGRAM, QD
     Route: 048
     Dates: start: 200511
  2. PREDONINE [Concomitant]
     Active Substance: PREDNISOLONE
     Route: 065
  3. REMICADE [Suspect]
     Active Substance: INFLIXIMAB
     Indication: CROHN^S DISEASE
     Dosage: UNK
     Route: 042
     Dates: start: 20090109
  4. REMICADE [Suspect]
     Active Substance: INFLIXIMAB
     Dosage: 200 MILLIGRAM, QD
     Route: 042
     Dates: start: 20200403, end: 20200403

REACTIONS (1)
  - Plasma cell myeloma [Recovering/Resolving]

NARRATIVE: CASE EVENT DATE: 20200403
